FAERS Safety Report 13124332 (Version 2)
Quarter: 2017Q1

REPORT INFORMATION
  Report Type: Spontaneous
  Country: PE (occurrence: PE)
  Receive Date: 20170118
  Receipt Date: 20170209
  Transmission Date: 20170428
  Serious: Yes (Death)
  Sender: FDA-Public Use
  Company Number: PE-AMGEN-PERSP2017007707

PATIENT
  Age: 76 Year
  Sex: Female

DRUGS (5)
  1. PROLIA [Suspect]
     Active Substance: DENOSUMAB
     Indication: OSTEOPOROSIS
     Dosage: 60 MG/ML, CYCLICAL
     Route: 058
     Dates: start: 20140708
  2. PROLIA [Suspect]
     Active Substance: DENOSUMAB
     Dosage: 60 MG/ML, CYCLICAL
     Route: 058
     Dates: start: 20160722
  3. PROLIA [Suspect]
     Active Substance: DENOSUMAB
     Dosage: 60 MG/ML, CYCLICAL
     Route: 058
     Dates: start: 20150715
  4. PROLIA [Suspect]
     Active Substance: DENOSUMAB
     Dosage: 60 MG/ML, CYCLICAL
     Route: 058
     Dates: start: 20160115
  5. PROLIA [Suspect]
     Active Substance: DENOSUMAB
     Dosage: 60 MG/ML, CYCLICAL
     Route: 058
     Dates: start: 20150114

REACTIONS (1)
  - Cardiac disorder [Fatal]
